FAERS Safety Report 9549670 (Version 1)
Quarter: 2013Q3

REPORT INFORMATION
  Report Type: Spontaneous
  Country: US (occurrence: None)
  Receive Date: 20130719
  Receipt Date: 20130719
  Transmission Date: 20140515
  Serious: Yes (Hospitalization)
  Sender: FDA-Public Use
  Company Number: 2012BAX022068

PATIENT
  Age: 64 Year
  Sex: Male

DRUGS (6)
  1. CYTOXAN [Suspect]
     Indication: PLASMA CELL MYELOMA
     Route: 042
     Dates: start: 20120706, end: 20120711
  2. CYTOXAN [Suspect]
     Indication: CHEMOTHERAPY
     Route: 042
     Dates: start: 20120706, end: 20120711
  3. ADRIAMYCIN [Suspect]
     Indication: PLASMA CELL MYELOMA
  4. ADRIAMYCIN [Suspect]
     Indication: CHEMOTHERAPY
  5. DEXAMETHASONE [Suspect]
     Indication: PLASMA CELL MYELOMA
     Dosage: UNKNOWN
     Dates: start: 20120706, end: 20120711
  6. DEXAMETHASONE [Suspect]
     Indication: CHEMOTHERAPY
     Dosage: UNKNOWN
     Dates: start: 20120706, end: 20120711

REACTIONS (1)
  - Febrile neutropenia [None]
